FAERS Safety Report 9749393 (Version 4)
Quarter: 2014Q1

REPORT INFORMATION
  Report Type: Report from Study
  Country: US (occurrence: US)
  Receive Date: 20131212
  Receipt Date: 20140221
  Transmission Date: 20141002
  Serious: Yes (Other)
  Sender: FDA-Public Use
  Company Number: US-JNJFOC-20131203125

PATIENT
  Age: 72 Year
  Sex: Female

DRUGS (9)
  1. REMICADE [Suspect]
     Indication: COLITIS
     Dosage: J1745
     Route: 042
  2. REMICADE [Suspect]
     Indication: COLITIS
     Route: 042
     Dates: start: 20131024
  3. IMURAN [Concomitant]
     Indication: COLITIS
     Route: 065
     Dates: start: 201307
  4. PREDNISONE [Concomitant]
     Indication: COLITIS
     Route: 065
     Dates: end: 201310
  5. PROBIOTIC [Concomitant]
     Route: 065
  6. CENTRUM SILVER [Concomitant]
     Indication: VITAMIN SUPPLEMENTATION
     Route: 065
  7. CALTRATE 600 D [Concomitant]
     Route: 065
  8. CLOBETASOL [Concomitant]
     Indication: PSORIASIS
     Dosage: FOR YEARS
     Route: 065
  9. LIALDA [Concomitant]
     Indication: COLITIS
     Route: 065
     Dates: end: 201310

REACTIONS (4)
  - Benign salivary gland neoplasm [Not Recovered/Not Resolved]
  - Drug ineffective [Not Recovered/Not Resolved]
  - Nasopharyngitis [Unknown]
  - Multiple allergies [Unknown]
